FAERS Safety Report 8832975 (Version 2)
Quarter: 2012Q4

REPORT INFORMATION
  Report Type: 
  Country: PL (occurrence: PL)
  Receive Date: 20121010
  Receipt Date: 20121205
  Transmission Date: 20130627
  Serious: Yes (Other)
  Sender: FDA-Public Use
  Company Number: PL-ABBOTT-12P-129-0992319-00

PATIENT
  Age: 37 Year
  Sex: Female
  Weight: 68 kg

DRUGS (4)
  1. HUMIRA [Suspect]
     Indication: PRODUCT USED FOR UNKNOWN INDICATION
     Route: 058
     Dates: start: 20120502, end: 20120920
  2. METYPRED [Concomitant]
     Indication: ARTHRALGIA
     Route: 048
     Dates: start: 2006
  3. METYPRED [Concomitant]
     Route: 048
     Dates: start: 2006
  4. PANTOPRAZOL [Concomitant]
     Indication: PROPHYLAXIS
     Route: 048
     Dates: start: 2006

REACTIONS (1)
  - Hepatic enzyme increased [Recovered/Resolved]
